FAERS Safety Report 8323359-1 (Version None)
Quarter: 2012Q2

REPORT INFORMATION
  Report Type: 
  Country: None (occurrence: None)
  Receive Date: 20120430
  Receipt Date: 20120416
  Transmission Date: 20120825
  Serious: Yes (Death)
  Sender: FDA-Public Use
  Company Number: US-BAXTER-2012BAX003188

PATIENT
  Sex: Female
  Weight: 110.32 kg

DRUGS (2)
  1. GAMMAGARD LIQUID [Suspect]
     Route: 041
     Dates: start: 20120124, end: 20120406
  2. GAMMAGARD LIQUID [Suspect]
     Indication: MYASTHENIA GRAVIS
     Route: 041
     Dates: start: 20120406, end: 20120406

REACTIONS (1)
  - DEATH [None]
